FAERS Safety Report 25618480 (Version 2)
Quarter: 2025Q3

REPORT INFORMATION
  Report Type: Spontaneous
  Country: US (occurrence: US)
  Receive Date: 20250729
  Receipt Date: 20250814
  Transmission Date: 20251021
  Serious: Yes (Hospitalization, Other)
  Sender: TEVA
  Company Number: US-TEVA-VS-3354588

PATIENT

DRUGS (4)
  1. GEMCITABINE [Suspect]
     Active Substance: GEMCITABINE
     Indication: Osteosarcoma
     Route: 065
  2. REGORAFENIB [Interacting]
     Active Substance: REGORAFENIB
     Indication: Osteosarcoma
     Route: 065
  3. IVERMECTIN [Interacting]
     Active Substance: IVERMECTIN
     Indication: Osteosarcoma
     Route: 065
  4. DOCETAXEL [Suspect]
     Active Substance: DOCETAXEL
     Indication: Osteosarcoma
     Route: 065

REACTIONS (10)
  - Drug ineffective [Unknown]
  - Somnolence [Recovered/Resolved]
  - Toxicity to various agents [Recovered/Resolved]
  - Neurotoxicity [Recovered/Resolved]
  - Fatigue [Recovered/Resolved]
  - Nausea [Recovered/Resolved]
  - Drug interaction [Unknown]
  - Decreased appetite [Recovered/Resolved]
  - Presyncope [Recovered/Resolved]
  - Intentional product misuse [Unknown]
